FAERS Safety Report 16438688 (Version 1)
Quarter: 2019Q2

REPORT INFORMATION
  Report Type: Report from Study
  Country: CN (occurrence: CN)
  Receive Date: 20190617
  Receipt Date: 20190617
  Transmission Date: 20190711
  Serious: Yes (Other)
  Sender: FDA-Public Use
  Company Number: CN-ROCHE-2333324

PATIENT

DRUGS (4)
  1. 5-FLUOROURACIL [FLUOROURACIL] [Suspect]
     Active Substance: FLUOROURACIL
     Indication: COLORECTAL CANCER STAGE IV
     Dosage: DAY 2-4
     Route: 041
  2. OXALIPLATIN. [Suspect]
     Active Substance: OXALIPLATIN
     Indication: COLORECTAL CANCER STAGE IV
     Dosage: DAY 1
     Route: 041
  3. BEVACIZUMAB. [Suspect]
     Active Substance: BEVACIZUMAB
     Indication: COLORECTAL CANCER STAGE IV
     Dosage: DAY 1
     Route: 041
  4. CALCIUM FOLINATE [Suspect]
     Active Substance: LEUCOVORIN CALCIUM
     Indication: COLORECTAL CANCER STAGE IV
     Dosage: DAY 2-4
     Route: 041

REACTIONS (8)
  - Proteinuria [Unknown]
  - Haemorrhage [Unknown]
  - Liver injury [Unknown]
  - Vomiting [Unknown]
  - Bone marrow failure [Unknown]
  - Cardiotoxicity [Unknown]
  - Hypertension [Unknown]
  - Nausea [Unknown]
